FAERS Safety Report 6410434-1 (Version None)
Quarter: 2009Q4

REPORT INFORMATION
  Report Type: 
  Country: None (occurrence: None)
  Receive Date: 20091022
  Receipt Date: 20090925
  Transmission Date: 20100525
  Serious: No
  Sender: FDA-Public Use
  Company Number: US-BAYER-200915005BCC

PATIENT
  Age: 27 Year
  Sex: Female
  Weight: 61 kg

DRUGS (3)
  1. ALEVE [Suspect]
     Indication: MUSCULOSKELETAL PAIN
     Dosage: TOTAL DAILY DOSE: 220 MG  UNIT DOSE: 220 MG
     Route: 048
     Dates: start: 20090924
  2. ALEVE [Suspect]
     Indication: MUSCULOSKELETAL PAIN
     Dosage: UNIT DOSE: 220 MG
     Route: 048
     Dates: start: 20090924
  3. ACETAMINOPHEN [Concomitant]
     Indication: MUSCULOSKELETAL PAIN
     Dosage: TOTAL DAILY DOSE: 2 DF
     Route: 065
     Dates: start: 20090924

REACTIONS (2)
  - ABDOMINAL DISCOMFORT [None]
  - ABDOMINAL PAIN [None]
